FAERS Safety Report 11616281 (Version 8)
Quarter: 2016Q2

REPORT INFORMATION
  Report Type: Report from Study
  Country: DE (occurrence: DE)
  Receive Date: 20151009
  Receipt Date: 20160510
  Transmission Date: 20160815
  Serious: Yes (Hospitalization)
  Sender: FDA-Public Use
  Company Number: DE-PFIZER INC-2015255276

PATIENT
  Age: 74 Year
  Sex: Male
  Weight: 74 kg

DRUGS (16)
  1. MSB0010718C [Suspect]
     Active Substance: AVELUMAB
     Indication: NEUROENDOCRINE CARCINOMA OF THE SKIN
     Dosage: 739 MG, CYCLIC, EVERY 2 WEEKS
     Route: 042
     Dates: start: 20150709, end: 20150709
  2. PANTOZOL [Concomitant]
     Active Substance: PANTOPRAZOLE SODIUM
     Dosage: 40 MG, 1X/DAY
     Route: 048
     Dates: start: 2013
  3. STEROFUNDIN [Concomitant]
     Indication: INFUSION RELATED REACTION
     Dosage: 1000 MG, UNK
     Route: 042
     Dates: start: 20150709, end: 20150710
  4. AMLODIPIN /00972401/ [Concomitant]
     Active Substance: AMLODIPINE BESYLATE
     Indication: CARDIAC FAILURE
  5. TARGIN [Concomitant]
     Active Substance: NALOXONE HYDROCHLORIDE\OXYCODONE HYDROCHLORIDE
     Indication: TUMOUR PAIN
     Dosage: 10 MG, 2X/DAY
     Route: 048
     Dates: start: 20150709
  6. NOVALGIN [Concomitant]
     Active Substance: METAMIZOLE SODIUM
     Indication: TUMOUR PAIN
     Dosage: 1000 MG, 4X/DAY
     Route: 048
     Dates: start: 20150709
  7. DOMPERIDON /00498201/ [Concomitant]
     Indication: NAUSEA
     Dosage: 10 MG, 3X/DAY
     Route: 048
     Dates: start: 20150709
  8. OXYCODON [Suspect]
     Active Substance: OXYCODONE
     Indication: NEUROENDOCRINE CARCINOMA OF THE SKIN
     Dosage: UNK
  9. AMLODIPIN /00972401/ [Concomitant]
     Active Substance: AMLODIPINE BESYLATE
     Indication: HYPERTENSION
     Dosage: 5 MG, 1X/DAY
     Route: 048
     Dates: start: 2011
  10. MSB0010718C [Suspect]
     Active Substance: AVELUMAB
     Dosage: EVERY 2 WEEK
     Route: 042
     Dates: start: 20150807
  11. PANTOZOL [Concomitant]
     Active Substance: PANTOPRAZOLE SODIUM
     Indication: PROPHYLAXIS
     Dosage: 40 MG, 1X/DAY
     Route: 048
     Dates: start: 20130101
  12. ASPIRIN. [Concomitant]
     Active Substance: ASPIRIN
     Indication: THROMBOSIS PROPHYLAXIS
     Dosage: 100 MG, 1X/DAY
     Route: 048
     Dates: start: 2011
  13. LAXOBERAL [Concomitant]
     Active Substance: SODIUM PICOSULFATE
     Indication: CONSTIPATION
     Dosage: 20 GTT, 3X/DAY
     Route: 048
     Dates: start: 20150709
  14. MOVICOL [Concomitant]
     Active Substance: POLYETHYLENE GLYCOL 3350\POTASSIUM CHLORIDE\SODIUM BICARBONATE\SODIUM CHLORIDE
     Indication: CONSTIPATION
     Dosage: 1BAG, 3X/DAY
     Route: 048
     Dates: start: 20150709
  15. SEVREDOL [Suspect]
     Active Substance: MORPHINE
     Indication: NEUROENDOCRINE CARCINOMA OF THE SKIN
     Dosage: UNK, AS NEEDED
  16. BISOPROLOL [Concomitant]
     Active Substance: BISOPROLOL
     Indication: HYPERTENSION
     Dosage: 5 MG, 1X/DAY
     Route: 048
     Dates: start: 2011

REACTIONS (3)
  - Abdominal pain [Recovered/Resolved]
  - Faecaloma [Not Recovered/Not Resolved]
  - Delirium [Recovered/Resolved with Sequelae]

NARRATIVE: CASE EVENT DATE: 20150719
